FAERS Safety Report 14604723 (Version 3)
Quarter: 2018Q1

REPORT INFORMATION
  Report Type: Spontaneous
  Country: US (occurrence: US)
  Receive Date: 20180306
  Receipt Date: 20180313
  Transmission Date: 20180509
  Serious: Yes (Other)
  Sender: FDA-Public Use
  Company Number: US-PFIZER INC-2018083571

PATIENT
  Age: 65 Year
  Sex: Female

DRUGS (5)
  1. ENBREL [Suspect]
     Active Substance: ETANERCEPT
     Indication: RHEUMATOID ARTHRITIS
  2. PREDNISONE. [Concomitant]
     Active Substance: PREDNISONE
     Indication: PRURITUS
     Dosage: UNK
     Dates: start: 201802
  3. PREDNISONE. [Concomitant]
     Active Substance: PREDNISONE
     Indication: INJECTION SITE ERYTHEMA
  4. ENBREL [Suspect]
     Active Substance: ETANERCEPT
     Indication: ANKYLOSING SPONDYLITIS
     Dosage: 50 MG, QWK
     Route: 065
     Dates: start: 20180112
  5. INFLIXIMAB [Suspect]
     Active Substance: INFLIXIMAB

REACTIONS (22)
  - Malaise [Unknown]
  - Headache [Unknown]
  - Throat tightness [Unknown]
  - Injection site pain [Unknown]
  - Hypermetropia [Unknown]
  - Joint injury [Unknown]
  - Back pain [Recovered/Resolved]
  - Muscle tightness [Unknown]
  - Drug effect incomplete [Unknown]
  - Wrong technique in product usage process [Unknown]
  - Sinus disorder [Recovering/Resolving]
  - Feeling cold [Unknown]
  - Injection site erythema [Unknown]
  - Drug dose omission [Unknown]
  - Increased tendency to bruise [Unknown]
  - Nausea [Recovered/Resolved]
  - Haemorrhagic diathesis [Unknown]
  - Pruritus [Unknown]
  - Fall [Unknown]
  - Injection site bruising [Unknown]
  - Device failure [Unknown]
  - Chest discomfort [Recovered/Resolved]

NARRATIVE: CASE EVENT DATE: 2018
